FAERS Safety Report 14008431 (Version 1)
Quarter: 2017Q3

REPORT INFORMATION
  Report Type: Spontaneous
  Country: US (occurrence: US)
  Receive Date: 20170925
  Receipt Date: 20170925
  Transmission Date: 20171128
  Serious: Yes (Hospitalization)
  Sender: FDA-Public Use
  Company Number: None

PATIENT
  Sex: Female
  Weight: 51.75 kg

DRUGS (2)
  1. TOPAMX [Concomitant]
  2. VIBERZI [Suspect]
     Active Substance: ELUXADOLINE
     Indication: IRRITABLE BOWEL SYNDROME
     Dosage: ?          QUANTITY:1 TABLET(S);?
     Route: 048
     Dates: start: 20170916, end: 20170924

REACTIONS (5)
  - Feeding disorder [None]
  - Pancreatitis [None]
  - Abdominal pain [None]
  - Sphincter of Oddi dysfunction [None]
  - Faecaloma [None]

NARRATIVE: CASE EVENT DATE: 20170918
